FAERS Safety Report 6372915-9 (Version None)
Quarter: 2009Q3

REPORT INFORMATION
  Report Type: 
  Country: None (occurrence: None)
  Receive Date: 20090924
  Receipt Date: 20090427
  Transmission Date: 20100115
  Serious: Yes (Other)
  Sender: FDA-Public Use
  Company Number: US-ASTRAZENECA-2008UW26528

PATIENT
  Age: 765 Month
  Sex: Male
  Weight: 139.7 kg

DRUGS (6)
  1. SEROQUEL [Suspect]
     Indication: DEPRESSION
     Route: 048
     Dates: start: 20061201
  2. WELLBUTRIN [Concomitant]
  3. EFFEXOR [Concomitant]
  4. LORAZEPAM [Concomitant]
  5. CYMBALTA [Concomitant]
  6. HYDROXYZINE [Concomitant]

REACTIONS (8)
  - DIABETES MELLITUS [None]
  - DYSKINESIA [None]
  - DYSPNOEA [None]
  - GAIT DISTURBANCE [None]
  - MOOD ALTERED [None]
  - MUSCLE TWITCHING [None]
  - PANIC ATTACK [None]
  - SALIVARY HYPERSECRETION [None]
